FAERS Safety Report 15708005 (Version 1)
Quarter: 2018Q4

REPORT INFORMATION
  Report Type: Spontaneous
  Country: US (occurrence: US)
  Receive Date: 20181128
  Receipt Date: 20181128
  Transmission Date: 20190205
  Serious: No
  Sender: FDA-Public Use
  Company Number: None

PATIENT
  Age: 62 Year
  Sex: Female

DRUGS (1)
  1. AFINITOR [Suspect]
     Active Substance: EVEROLIMUS
     Route: 048
     Dates: start: 201809

REACTIONS (5)
  - Dehydration [None]
  - Vomiting [None]
  - Diarrhoea [None]
  - Viral infection [None]
  - Abdominal pain upper [None]

NARRATIVE: CASE EVENT DATE: 20181124
